FAERS Safety Report 5054819-7 (Version None)
Quarter: 2006Q3

REPORT INFORMATION
  Report Type: 
  Country: None (occurrence: None)
  Receive Date: 20060719
  Receipt Date: 20060516
  Transmission Date: 20061208
  Serious: Yes (Other)
  Sender: FDA-Public Use
  Company Number: US-AVENTIS-200614430US

PATIENT
  Sex: Female
  Weight: 89 kg

DRUGS (8)
  1. KETEK [Suspect]
     Indication: SINUSITIS
     Dates: start: 20051101
  2. KETEK [Suspect]
     Route: 048
     Dates: start: 20060330
  3. ASMANEX                                 /CAN/ [Concomitant]
     Indication: ASTHMA
     Route: 055
     Dates: start: 20051101
  4. MAVIK [Concomitant]
     Route: 048
  5. EVISTA [Concomitant]
     Indication: OSTEOPENIA
     Route: 048
  6. PRILOSEC [Concomitant]
     Indication: GASTROOESOPHAGEAL REFLUX DISEASE
     Route: 048
  7. ALLEGRA [Concomitant]
     Indication: MULTIPLE ALLERGIES
     Route: 048
  8. ACCOLATE [Concomitant]
     Indication: ASTHMA
     Route: 048

REACTIONS (6)
  - ABDOMINAL PAIN [None]
  - ALANINE AMINOTRANSFERASE INCREASED [None]
  - ASPARTATE AMINOTRANSFERASE INCREASED [None]
  - BLOOD ALKALINE PHOSPHATASE INCREASED [None]
  - BLOOD BILIRUBIN INCREASED [None]
  - LIVER DISORDER [None]
